FAERS Safety Report 6510262-2 (Version None)
Quarter: 2009Q4

REPORT INFORMATION
  Report Type: 
  Country: None (occurrence: None)
  Receive Date: 20091222
  Receipt Date: 20091210
  Transmission Date: 20100525
  Serious: No
  Sender: FDA-Public Use
  Company Number: US-ROXANE LABORATORIES, INC.-2009-RO-01281RO

PATIENT
  Sex: Female

DRUGS (2)
  1. FLUTICASONE [Suspect]
     Indication: HYPERSENSITIVITY
     Route: 045
     Dates: end: 20091210
  2. FORADIL [Concomitant]
     Indication: BRONCHIAL DISORDER

REACTIONS (2)
  - ACNE [None]
  - NASAL MUCOSAL DISORDER [None]
